FAERS Safety Report 12850295 (Version 3)
Quarter: 2017Q1

REPORT INFORMATION
  Report Type: Report from Study
  Country: US (occurrence: US)
  Receive Date: 20161014
  Receipt Date: 20170331
  Transmission Date: 20170428
  Serious: Yes (Hospitalization, Other)
  Sender: FDA-Public Use
  Company Number: US-GILEAD-2016-0238465

PATIENT
  Age: 75 Year
  Sex: Male

DRUGS (22)
  1. PANTOPRAZOLE [Concomitant]
     Active Substance: PANTOPRAZOLE SODIUM
  2. FLUZONE                            /00780601/ [Concomitant]
     Active Substance: FLUCONAZOLE
  3. PREDNISONE. [Concomitant]
     Active Substance: PREDNISONE
  4. VITAMIN D3 [Concomitant]
     Active Substance: CHOLECALCIFEROL
  5. ASPIRIN                            /00002701/ [Concomitant]
     Active Substance: ASPIRIN
  6. BENAZEPRIL [Concomitant]
     Active Substance: BENAZEPRIL HYDROCHLORIDE
  7. METPROLOL [Concomitant]
     Active Substance: METOPROLOL
  8. COENZYME Q10 [Concomitant]
     Active Substance: UBIDECARENONE
  9. IRON [Concomitant]
     Active Substance: IRON
  10. ZINC. [Concomitant]
     Active Substance: ZINC
  11. FUROSEMIDE. [Concomitant]
     Active Substance: FUROSEMIDE
  12. AMBRISENTAN [Suspect]
     Active Substance: AMBRISENTAN
     Indication: PULMONARY HYPERTENSION
     Dosage: 10 MG, QD
     Route: 048
  13. ANORO ELLIPTA [Concomitant]
     Active Substance: UMECLIDINIUM BROMIDE\VILANTEROL TRIFENATATE
  14. ATORVASTATIN [Concomitant]
     Active Substance: ATORVASTATIN
  15. FLUOXETINE [Concomitant]
     Active Substance: FLUOXETINE HYDROCHLORIDE
  16. PROAIR HFA [Concomitant]
     Active Substance: ALBUTEROL SULFATE
  17. ALBUTEROL SULFATE. [Concomitant]
     Active Substance: ALBUTEROL SULFATE
  18. HYDROCODONE [Concomitant]
     Active Substance: HYDROCODONE
  19. VITAMIN C [Concomitant]
     Active Substance: ASCORBIC ACID
  20. OXYGEN. [Concomitant]
     Active Substance: OXYGEN
  21. ELIQUIS [Concomitant]
     Active Substance: APIXABAN
  22. VITAMIN E                          /00110501/ [Concomitant]
     Active Substance: TOCOPHEROL

REACTIONS (5)
  - Cardiac failure [Unknown]
  - Oedema [Recovering/Resolving]
  - Pleural effusion [Unknown]
  - Dyspnoea [Recovering/Resolving]
  - Anaemia [Unknown]
